FAERS Safety Report 8620346-0 (Version None)
Quarter: 2012Q3

REPORT INFORMATION
  Report Type: 
  Country: None (occurrence: None)
  Receive Date: 20120824
  Receipt Date: 20120814
  Transmission Date: 20120928
  Serious: Yes (Hospitalization)
  Sender: FDA-Public Use
  Company Number: US-GLAXOSMITHKLINE-A0840352A

PATIENT
  Age: 58 Year
  Sex: Female
  Weight: 87.7 kg

DRUGS (6)
  1. AVANDIA [Suspect]
     Indication: TYPE 2 DIABETES MELLITUS
     Dosage: 4MG PER DAY
     Route: 048
     Dates: start: 20020101, end: 20070816
  2. AVAPRO [Concomitant]
  3. PRAVASTATIN [Concomitant]
  4. METFORMIN HCL [Concomitant]
  5. DETROL [Concomitant]
  6. TARKA [Concomitant]

REACTIONS (3)
  - MYOCARDIAL ISCHAEMIA [None]
  - ACUTE MYOCARDIAL INFARCTION [None]
  - CORONARY ARTERY DISEASE [None]
